FAERS Safety Report 4748862-2 (Version None)
Quarter: 2005Q3

REPORT INFORMATION
  Report Type: 
  Country: None (occurrence: None)
  Receive Date: 20050819
  Receipt Date: 20041203
  Transmission Date: 20060218
  Serious: Yes (Other)
  Sender: FDA-Public Use
  Company Number: GB-GLAXOSMITHKLINE-B0361764A

PATIENT
  Sex: Female

DRUGS (9)
  1. PAROXETINE HYDROCHLORIDE [Suspect]
     Indication: POST VIRAL FATIGUE SYNDROME
     Route: 065
     Dates: start: 20010313, end: 20040801
  2. PARACETAMOL [Suspect]
     Route: 065
  3. CITALOPRAM [Suspect]
     Route: 065
  4. ALCOHOL [Suspect]
     Route: 065
  5. DIAZEPAM [Suspect]
     Route: 065
  6. CODYDRAMOL [Suspect]
  7. IBUPROFEN [Suspect]
  8. PROCHLORPERAZINE [Suspect]
  9. BUSPIRONE [Suspect]

REACTIONS (12)
  - AGITATION [None]
  - CRYING [None]
  - DRUG WITHDRAWAL SYNDROME [None]
  - FATIGUE [None]
  - HEADACHE [None]
  - INTENTIONAL MISUSE [None]
  - IRRITABILITY [None]
  - LETHARGY [None]
  - MOOD ALTERED [None]
  - MULTIPLE DRUG OVERDOSE [None]
  - NIGHTMARE [None]
  - SOMNOLENCE [None]
